FAERS Safety Report 6093062-X (Version None)
Quarter: 2009Q1

REPORT INFORMATION
  Report Type: 
  Country: None (occurrence: None)
  Receive Date: 20090224
  Receipt Date: 20090211
  Transmission Date: 20090719
  Serious: Yes (Death, Life-Threatening, Hospitalization)
  Sender: FDA-Public Use
  Company Number: 2009-00570

PATIENT
  Age: 51 Year
  Sex: Female

DRUGS (3)
  1. VELCADE [Suspect]
     Indication: MULTIPLE MYELOMA
     Dosage: INTRAVENOUS
     Route: 042
  2. DEXAMETHASONE [Concomitant]
  3. ACYCLOVIR [Concomitant]

REACTIONS (3)
  - BRAIN MASS [None]
  - ENCEPHALITIS HERPES [None]
  - MENINGOENCEPHALITIS BACTERIAL [None]
